FAERS Safety Report 12298937 (Version 6)
Quarter: 2022Q1

REPORT INFORMATION
  Report Type: Report from Study
  Country: IN (occurrence: None)
  Receive Date: 20160425
  Receipt Date: 20220216
  Transmission Date: 20220423
  Serious: Yes (Hospitalization, Other)
  Sender: FDA-Public Use
  Company Number: IN-ROCHE-1738279

PATIENT
  Age: 45 Year
  Sex: Male
  Weight: 77.8 kg

DRUGS (54)
  1. RITUXIMAB [Suspect]
     Active Substance: RITUXIMAB
     Indication: Granulomatosis with polyangiitis
     Dosage: DATE OF LAST DOSE PRIOR TO SAE: 02/APR/2016
     Route: 042
     Dates: start: 20160310, end: 20160310
  2. RITUXIMAB [Suspect]
     Active Substance: RITUXIMAB
     Dosage: VISIT 2
     Route: 042
     Dates: start: 20160317, end: 20160317
  3. RITUXIMAB [Suspect]
     Active Substance: RITUXIMAB
     Dosage: VISIT 3
     Route: 042
     Dates: start: 20160325, end: 20160325
  4. RITUXIMAB [Suspect]
     Active Substance: RITUXIMAB
     Dosage: VISIT 4
     Route: 042
     Dates: start: 20160402, end: 20160402
  5. METHYLPREDNISOLONE [Suspect]
     Active Substance: METHYLPREDNISOLONE
     Indication: Granulomatosis with polyangiitis
     Route: 042
     Dates: start: 20160302, end: 20160302
  6. METHYLPREDNISOLONE [Suspect]
     Active Substance: METHYLPREDNISOLONE
     Indication: Vasculitis
     Route: 042
     Dates: start: 20160310
  7. PREDNISOLONE [Concomitant]
     Active Substance: PREDNISOLONE
     Indication: Vasculitis
     Route: 048
     Dates: start: 20160303, end: 20160317
  8. PREDNISOLONE [Concomitant]
     Active Substance: PREDNISOLONE
     Route: 048
     Dates: start: 20160317, end: 20160328
  9. PREDNISOLONE [Concomitant]
     Active Substance: PREDNISOLONE
     Route: 048
     Dates: start: 20160328, end: 20160430
  10. PREDNISOLONE [Concomitant]
     Active Substance: PREDNISOLONE
     Route: 048
     Dates: start: 20130422
  11. PREDNISOLONE [Concomitant]
     Active Substance: PREDNISOLONE
     Dates: start: 20160511
  12. DOMPERIDONE\PANTOPRAZOLE SODIUM [Concomitant]
     Active Substance: DOMPERIDONE\PANTOPRAZOLE SODIUM
     Indication: Dyspepsia
     Route: 048
     Dates: start: 20160303
  13. NIFEDIPINE [Concomitant]
     Active Substance: NIFEDIPINE
     Indication: Hypertension
     Route: 048
     Dates: start: 20160303, end: 20160328
  14. NIFEDIPINE [Concomitant]
     Active Substance: NIFEDIPINE
     Dosage: 1-0-1
     Dates: start: 20160328
  15. NIFEDIPINE [Concomitant]
     Active Substance: NIFEDIPINE
     Route: 048
     Dates: start: 20151006
  16. METOPROLOL [Concomitant]
     Active Substance: METOPROLOL
     Dates: start: 20160303
  17. CALCIUM CARBONATE\CHOLECALCIFEROL [Concomitant]
     Active Substance: CALCIUM CARBONATE\CHOLECALCIFEROL
     Indication: Hypocalcaemia
     Route: 048
     Dates: start: 20160303, end: 20160328
  18. CALCIUM CARBONATE\CHOLECALCIFEROL [Concomitant]
     Active Substance: CALCIUM CARBONATE\CHOLECALCIFEROL
     Route: 048
     Dates: start: 20160328
  19. AZORAN (INDIA) [Concomitant]
     Indication: Vasculitis
     Route: 048
     Dates: start: 20160303, end: 20160317
  20. AZORAN (INDIA) [Concomitant]
     Route: 048
     Dates: start: 20151006
  21. FEBUXOSTAT [Concomitant]
     Active Substance: FEBUXOSTAT
     Route: 048
     Dates: start: 20160303, end: 20160317
  22. FEBUXOSTAT [Concomitant]
     Active Substance: FEBUXOSTAT
     Dosage: ALTERNATE DAYS
     Route: 048
     Dates: start: 20160317
  23. FEBUXOSTAT [Concomitant]
     Active Substance: FEBUXOSTAT
     Dates: start: 20160511
  24. MINIPRESS [Concomitant]
     Active Substance: PRAZOSIN HYDROCHLORIDE
     Indication: Hypertension
     Route: 048
     Dates: start: 20160303, end: 20160328
  25. MINIPRESS [Concomitant]
     Active Substance: PRAZOSIN HYDROCHLORIDE
     Dosage: 0-1-0
     Route: 048
     Dates: start: 20160419, end: 20160504
  26. MINIPRESS [Concomitant]
     Active Substance: PRAZOSIN HYDROCHLORIDE
     Dates: start: 20160511, end: 20160629
  27. LEVOTHYROXINE [Concomitant]
     Active Substance: LEVOTHYROXINE
     Indication: Hypothyroidism
     Route: 048
     Dates: start: 20160303
  28. LEVOTHYROXINE [Concomitant]
     Active Substance: LEVOTHYROXINE
     Route: 048
     Dates: start: 20151006
  29. SEVCAR [Concomitant]
     Indication: Hyperphosphataemia
     Route: 048
     Dates: start: 20160303
  30. LASIX [Concomitant]
     Active Substance: FUROSEMIDE
     Dosage: 1/2-1/2
     Route: 048
     Dates: start: 20160303, end: 20160317
  31. LASIX [Concomitant]
     Active Substance: FUROSEMIDE
     Dosage: 1-0-1/2
     Route: 048
     Dates: start: 20160317, end: 20160328
  32. ONDANSETRON HYDROCHLORIDE [Concomitant]
     Active Substance: ONDANSETRON HYDROCHLORIDE
     Indication: Nausea
     Dosage: SOS
     Route: 048
     Dates: start: 20160303, end: 20160303
  33. AMOXICILLIN\CLAVULANATE POTASSIUM [Concomitant]
     Active Substance: AMOXICILLIN\CLAVULANATE POTASSIUM
     Route: 048
     Dates: start: 20160328, end: 20160401
  34. AMOXICILLIN\CLAVULANATE POTASSIUM [Concomitant]
     Active Substance: AMOXICILLIN\CLAVULANATE POTASSIUM
     Route: 048
     Dates: start: 20160419, end: 20160423
  35. FOLVITE [Concomitant]
     Active Substance: FOLIC ACID
     Indication: Folate deficiency
     Route: 048
     Dates: start: 20160419
  36. FOLVITE [Concomitant]
     Active Substance: FOLIC ACID
     Route: 048
     Dates: start: 20130422
  37. FEFOL Z [Concomitant]
     Route: 048
     Dates: start: 20160419
  38. RESTYL [Concomitant]
     Route: 048
     Dates: start: 20160419
  39. FUROSEMIDE [Concomitant]
     Active Substance: FUROSEMIDE
     Dates: start: 20160328
  40. PANTOPRAZOLE [Concomitant]
     Active Substance: PANTOPRAZOLE
     Indication: Dyspepsia
     Route: 048
     Dates: start: 20130422
  41. LOSARTAN [Concomitant]
     Active Substance: LOSARTAN
     Indication: Hypertension
     Route: 048
     Dates: start: 20130422
  42. PREDNISOLONE [Concomitant]
     Active Substance: PREDNISOLONE
     Indication: Vasculitis
     Route: 048
     Dates: start: 20160303
  43. PREDNISOLONE [Concomitant]
     Active Substance: PREDNISOLONE
     Route: 048
     Dates: start: 20160317, end: 20160402
  44. PREDNISOLONE [Concomitant]
     Active Substance: PREDNISOLONE
     Route: 048
     Dates: start: 20160303, end: 20160317
  45. PREDNISOLONE [Concomitant]
     Active Substance: PREDNISOLONE
     Route: 048
     Dates: start: 20160402, end: 20160416
  46. PREDNISOLONE [Concomitant]
     Active Substance: PREDNISOLONE
     Route: 048
     Dates: start: 20160504, end: 20160609
  47. PREDNISOLONE [Concomitant]
     Active Substance: PREDNISOLONE
     Route: 048
     Dates: start: 20160609
  48. AMOXICILLIN\CLAVULANATE POTASSIUM [Concomitant]
     Active Substance: AMOXICILLIN\CLAVULANATE POTASSIUM
     Route: 042
     Dates: start: 20160327, end: 20160327
  49. AMOXICILLIN\CLAVULANATE POTASSIUM [Concomitant]
     Active Substance: AMOXICILLIN\CLAVULANATE POTASSIUM
     Route: 042
     Dates: start: 20160415, end: 20160416
  50. PIPERACILLIN AND TAZOBACTAM [Concomitant]
     Active Substance: PIPERACILLIN SODIUM\TAZOBACTAM SODIUM
     Route: 042
     Dates: start: 20160504, end: 20160511
  51. PIPERACILLIN AND TAZOBACTAM [Concomitant]
     Active Substance: PIPERACILLIN SODIUM\TAZOBACTAM SODIUM
     Route: 042
     Dates: start: 20160509, end: 20160514
  52. AZITHROMYCIN [Concomitant]
     Active Substance: AZITHROMYCIN
     Route: 048
     Dates: start: 20160504, end: 20160506
  53. CIPROFLOXACIN [Concomitant]
     Active Substance: CIPROFLOXACIN
     Dates: start: 20160511, end: 20160526
  54. AZATHIOPRINE [Concomitant]
     Active Substance: AZATHIOPRINE
     Dates: start: 20160303, end: 20160317

REACTIONS (8)
  - Pulmonary oedema [Recovered/Resolved]
  - Acute kidney injury [Recovering/Resolving]
  - Granulomatosis with polyangiitis [Recovering/Resolving]
  - Blood creatinine increased [Recovering/Resolving]
  - Pneumonia [Recovered/Resolved]
  - Respiratory failure [Recovered/Resolved]
  - Peritoneal dialysis [Recovered/Resolved]
  - Pulmonary oedema [Recovered/Resolved]

NARRATIVE: CASE EVENT DATE: 20160325
